FAERS Safety Report 15662857 (Version 3)
Quarter: 2019Q1

REPORT INFORMATION
  Report Type: Spontaneous
  Country: US (occurrence: US)
  Receive Date: 20181127
  Receipt Date: 20190128
  Transmission Date: 20190417
  Serious: Yes (Other)
  Sender: FDA-Public Use
  Company Number: US-SA-2018SA187502

PATIENT
  Age: 57 Year
  Sex: Female
  Weight: 92.53 kg

DRUGS (10)
  1. BENADRYL [Concomitant]
     Active Substance: DIPHENHYDRAMINE HYDROCHLORIDE
     Dosage: 25 MG
     Route: 048
  2. CLARITIN [CLARITHROMYCIN] [Concomitant]
     Active Substance: CLARITHROMYCIN
     Dosage: 10 MG
  3. ADRIAMYCIN [Concomitant]
     Active Substance: DOXORUBICIN HYDROCHLORIDE
  4. DECADRON [DEXAMETHASONE ACETATE] [Concomitant]
     Dosage: 8 MG
     Route: 042
  5. TYLENOL [Concomitant]
     Active Substance: ACETAMINOPHEN
     Dosage: 650 MG
     Route: 048
  6. COMPAZINE [Concomitant]
     Active Substance: PROCHLORPERAZINE MALEATE
     Dosage: 10 MG, Q6H
     Route: 048
  7. TAXOTERE [Suspect]
     Active Substance: DOCETAXEL
     Indication: BREAST CANCER FEMALE
     Dosage: 55 MG, Q3W
     Route: 042
     Dates: start: 20011227, end: 20011227
  8. HERCEPTIN [Concomitant]
     Active Substance: TRASTUZUMAB
     Dosage: 170 MG, QW
     Route: 042
  9. NEUPOGEN [Concomitant]
     Active Substance: FILGRASTIM
     Dosage: 480 MG
     Route: 058
  10. TAXOTERE [Suspect]
     Active Substance: DOCETAXEL
     Dosage: UNK
     Route: 042
     Dates: start: 20120224, end: 20120224

REACTIONS (1)
  - Alopecia [Not Recovered/Not Resolved]

NARRATIVE: CASE EVENT DATE: 20120201
